FAERS Safety Report 4535404-X (Version None)
Quarter: 2004Q4

REPORT INFORMATION
  Report Type: 
  Country: None (occurrence: None)
  Receive Date: 20041214
  Receipt Date: 20040802
  Transmission Date: 20050328
  Serious: No
  Sender: FDA-Public Use
  Company Number: USA040874254

PATIENT
  Age: 59 Year
  Sex: Male
  Weight: 82 kg

DRUGS (1)
  1. CIALIS [Suspect]
     Indication: ERECTILE DYSFUNCTION
     Dosage: 20 MG AS NEEDED
     Dates: start: 20040724

REACTIONS (4)
  - EJACULATION DISORDER [None]
  - ERECTILE DYSFUNCTION [None]
  - ERECTION INCREASED [None]
  - THERAPEUTIC RESPONSE DECREASED [None]
